FAERS Safety Report 17500054 (Version 1)
Quarter: 2020Q1

REPORT INFORMATION
  Report Type: Spontaneous
  Country: US (occurrence: US)
  Receive Date: 20200305
  Receipt Date: 20200305
  Transmission Date: 20200409
  Serious: No
  Sender: FDA-Public Use
  Company Number: US-009507513-2002USA003219

PATIENT
  Sex: Female

DRUGS (2)
  1. GANIRELIX ACETATE INJECTION [Suspect]
     Active Substance: GANIRELIX ACETATE
     Dosage: UNK; STRENGTH: 250MCG/.5ML
     Dates: start: 20200130
  2. GANIRELIX ACETATE INJECTION [Suspect]
     Active Substance: GANIRELIX ACETATE
     Dosage: UNK; STRENGTH: 250MCG/.5ML
     Dates: start: 20200130

REACTIONS (3)
  - No adverse event [Unknown]
  - Device difficult to use [Unknown]
  - Needle issue [Unknown]

NARRATIVE: CASE EVENT DATE: 20200130
